FAERS Safety Report 20734819 (Version 1)
Quarter: 2022Q2

REPORT INFORMATION
  Report Type: Spontaneous
  Country: US (occurrence: US)
  Receive Date: 20220421
  Receipt Date: 20220421
  Transmission Date: 20220721
  Serious: Yes (Hospitalization)
  Sender: FDA-Public Use
  Company Number: US-MYLANLABS-2022M1028882

PATIENT
  Age: 50 Day
  Sex: Male

DRUGS (2)
  1. DESMOPRESSIN [Suspect]
     Active Substance: DESMOPRESSIN
     Indication: Diabetes insipidus
     Dosage: 0.05 MICROGRAM, QD
     Route: 042
  2. DESMOPRESSIN [Suspect]
     Active Substance: DESMOPRESSIN
     Dosage: 0.03 MICROGRAM, BID
     Route: 042

REACTIONS (2)
  - Hyponatraemia [Recovered/Resolved]
  - Off label use [Unknown]
